FAERS Safety Report 5371077-4 (Version None)
Quarter: 2007Q2

REPORT INFORMATION
  Report Type: 
  Country: None (occurrence: None)
  Receive Date: 20070626
  Receipt Date: 20070615
  Transmission Date: 20071010
  Serious: Yes (Other)
  Sender: FDA-Public Use
  Company Number: US-PFIZER INC-2007049377

PATIENT
  Sex: Female
  Weight: 65.8 kg

DRUGS (2)
  1. NARDIL [Suspect]
     Indication: DEPRESSION
     Route: 048
  2. SYNTHROID [Concomitant]

REACTIONS (6)
  - COUGH [None]
  - HEADACHE [None]
  - NAUSEA [None]
  - SINUSITIS [None]
  - STOMACH DISCOMFORT [None]
  - URTICARIA GENERALISED [None]
